FAERS Safety Report 10758754 (Version 1)
Quarter: 2015Q1

REPORT INFORMATION
  Report Type: Spontaneous
  Country: US (occurrence: None)
  Receive Date: 20150123
  Receipt Date: 20150123
  Transmission Date: 20150721
  Serious: No
  Sender: FDA-Public Use
  Company Number: TPA2012A09710

PATIENT
  Age: 52 Year
  Sex: Female
  Weight: 170 kg

DRUGS (23)
  1. RENAL CAPS (ASCORBIC ACID, VITAMIN B NOS) [Concomitant]
  2. PHOSLO [Concomitant]
     Active Substance: CALCIUM ACETATE
  3. CITRATE (MAGNESIUM CITRATE) [Concomitant]
  4. HEPARIN [Concomitant]
     Active Substance: HEPARIN SODIUM
  5. LOPERAMIDE [Concomitant]
     Active Substance: LOPERAMIDE
  6. PROCHLORPERAZINE. [Concomitant]
     Active Substance: PROCHLORPERAZINE
  7. ATIVAN [Concomitant]
     Active Substance: LORAZEPAM
  8. OXYCODONE [Concomitant]
     Active Substance: OXYCODONE
  9. SENSIPAR (CINACALCET HYDROCHLORIDE) [Concomitant]
  10. NITROQUICK (GLYCERYL TRINITRATE) [Concomitant]
  11. RENAGEL (SEVELAMER) [Concomitant]
  12. BACTRIM [Concomitant]
     Active Substance: SULFAMETHOXAZOLE\TRIMETHOPRIM
  13. ZEMPLAR [Concomitant]
     Active Substance: PARICALCITOL
  14. ACETAMINOPHEN (PARACETAMOL) [Concomitant]
     Active Substance: ACETAMINOPHEN
  15. INSULIN [Concomitant]
     Active Substance: INSULIN NOS
  16. PLAVIX (CLOPIDOGREL BISULFATE) [Concomitant]
  17. TRENTAL (PENTOXIFYLLINE) [Concomitant]
  18. SILVADENE (SULFADIAZINE SILVER) [Concomitant]
  19. NEXIUM [Concomitant]
     Active Substance: ESOMEPRAZOLE MAGNESIUM
  20. NICORETTE [Concomitant]
     Active Substance: NICOTINE
  21. EPOGEN [Concomitant]
     Active Substance: ERYTHROPOIETIN
  22. GENTAMICIN SULFATE. [Concomitant]
     Active Substance: GENTAMICIN SULFATE
  23. OMONTYS [Suspect]
     Active Substance: PEGINESATIDE
     Indication: NEPHROGENIC ANAEMIA
     Route: 042
     Dates: start: 20121113, end: 20121113

REACTIONS (10)
  - Hypersensitivity [None]
  - Dizziness [None]
  - Anxiety [None]
  - Dyspnoea [None]
  - Nausea [None]
  - Eyelid oedema [None]
  - Rash [None]
  - Pruritus [None]
  - Chest discomfort [None]
  - Erythema [None]

NARRATIVE: CASE EVENT DATE: 20121113
